FAERS Safety Report 4523538-5 (Version None)
Quarter: 2004Q4

REPORT INFORMATION
  Report Type: 
  Country: None (occurrence: None)
  Receive Date: 20041210
  Receipt Date: 20041207
  Transmission Date: 20050328
  Serious: Yes (Death)
  Sender: FDA-Public Use
  Company Number: US-JNJFOC-20041002736

PATIENT
  Age: 23 Year
  Sex: Male

DRUGS (1)
  1. DURAGESIC [Suspect]
     Route: 062
     Dates: start: 20040901

REACTIONS (4)
  - APPLICATION SITE ERYTHEMA [None]
  - DEATH [None]
  - PAIN [None]
  - PHARMACEUTICAL PRODUCT COMPLAINT [None]
